FAERS Safety Report 5310976-6 (Version None)
Quarter: 2007Q2

REPORT INFORMATION
  Report Type: 
  Country: None (occurrence: None)
  Receive Date: 20070423
  Receipt Date: 20070416
  Transmission Date: 20071010
  Serious: Yes (Life-Threatening)
  Sender: FDA-Public Use
  Company Number: 2007S1000036

PATIENT
  Age: 11 Day
  Sex: Male

DRUGS (10)
  1. NITRIC OXIDE [Suspect]
     Indication: LUNG DISORDER
     Dosage: 5 PPM; CONT; INH
     Route: 055
     Dates: start: 20070120, end: 20070203
  2. NITRIC OXIDE [Suspect]
     Indication: PROPHYLAXIS
     Dosage: 5 PPM; CONT; INH
     Route: 055
     Dates: start: 20070120, end: 20070203
  3. TEICOPLANIN (TEICOPLANIN) [Concomitant]
  4. TOBRAMYCIN [Concomitant]
  5. REMIFENTANIL (REMIFENTANIL) [Concomitant]
  6. AMPHOTERICIN B [Concomitant]
  7. FLUCYTOSINE (FLUCYTOSINE) [Concomitant]
  8. INDOMETHACIN [Concomitant]
  9. AMPICILLIN [Concomitant]
  10. AMIKACIN [Concomitant]

REACTIONS (3)
  - INTRAVENTRICULAR HAEMORRHAGE NEONATAL [None]
  - NECROTISING ENTEROCOLITIS NEONATAL [None]
  - PATENT DUCTUS ARTERIOSUS [None]
